FAERS Safety Report 16554005 (Version 8)
Quarter: 2021Q1

REPORT INFORMATION
  Report Type: Report from Study
  Country: GB (occurrence: GB)
  Receive Date: 20190710
  Receipt Date: 20210104
  Transmission Date: 20210419
  Serious: Yes (Hospitalization)
  Sender: FDA-Public Use
  Company Number: GB-MYLANLABS-2019M1062897

PATIENT
  Age: 31 Year
  Sex: Female

DRUGS (109)
  1. TRASTUZUMAB. [Suspect]
     Active Substance: TRASTUZUMAB
     Indication: BREAST CANCER METASTATIC
     Dosage: 350 MILLIGRAM, Q3W
     Route: 042
     Dates: start: 20160303, end: 20160324
  2. CAPECITABINE. [Suspect]
     Active Substance: CAPECITABINE
     Indication: BREAST CANCER METASTATIC
     Dosage: 2000 MILLIGRAM, BID
     Route: 048
     Dates: start: 20190319, end: 20191224
  3. PERTUZUMAB. [Suspect]
     Active Substance: PERTUZUMAB
     Dosage: 840 MILLIGRAM, Q3W LOADING DOSE AS PER PROTOCOL, LOADING DOSE AS PER PROTOCOL
     Route: 042
     Dates: start: 20150326
  4. DOXORUBICIN [Suspect]
     Active Substance: DOXORUBICIN
     Indication: BREAST CANCER METASTATIC
     Dosage: 130 MILLIGRAM, Q3W
     Route: 042
     Dates: start: 20200128
  5. PARACETAMOL [Concomitant]
     Active Substance: ACETAMINOPHEN
     Indication: OVARIAN CYST
     Dosage: 4000 MILLIGRAM, QD
     Route: 042
     Dates: start: 20160718
  6. CASSIA ACUTIFOLIA [Concomitant]
     Dosage: 7.5 MILLIGRAM, QD
     Route: 048
     Dates: start: 201505, end: 201505
  7. LORAZEPAM. [Concomitant]
     Active Substance: LORAZEPAM
     Indication: ANXIETY
     Dosage: 1 MILLIGRAM, 0.33 DAY
     Route: 048
     Dates: start: 201603, end: 201603
  8. DOCUSATE SODIUM. [Concomitant]
     Active Substance: DOCUSATE SODIUM
     Dosage: 100 MILLIGRAM, 0.33 DAY
     Route: 048
     Dates: start: 20160516
  9. DALTEPARIN [Concomitant]
     Active Substance: DALTEPARIN
     Dosage: 5000 INTERNATIONAL UNIT
     Route: 058
     Dates: start: 20190116, end: 20190119
  10. DALTEPARIN [Concomitant]
     Active Substance: DALTEPARIN
     Dosage: 5000 INTERNATIONAL UNIT, QD
     Route: 058
     Dates: start: 20200203, end: 20200205
  11. CYSTITIS RELIEF                    /00609201/ [Concomitant]
     Dosage: 1 SACHET
     Route: 048
     Dates: start: 201503
  12. OMEPRAZOLE. [Concomitant]
     Active Substance: OMEPRAZOLE
     Indication: GASTROOESOPHAGEAL REFLUX DISEASE
     Dosage: 20 MILLIGRAM
     Route: 048
     Dates: start: 201505
  13. BRUFEN                             /00109201/ [Concomitant]
     Active Substance: IBUPROFEN
     Dosage: 400 MILLIGRAM, 0.33 DAY
     Route: 048
     Dates: start: 20150509
  14. METOCLOPRAMIDE. [Concomitant]
     Active Substance: METOCLOPRAMIDE
     Dosage: 30 MILLIGRAM, QD
     Route: 065
     Dates: start: 20150813
  15. DICLOFENAC [Concomitant]
     Active Substance: DICLOFENAC
     Indication: BACK PAIN
     Dosage: 50 MILLIGRAM
     Route: 048
     Dates: start: 20150721, end: 201508
  16. NYSTATIN. [Concomitant]
     Active Substance: NYSTATIN
     Dosage: 4, QD 100000 U
     Route: 050
     Dates: start: 201603, end: 20160330
  17. DULOXETINE. [Concomitant]
     Active Substance: DULOXETINE
     Dosage: 60 MILLIGRAM, BID
     Route: 048
     Dates: start: 201603
  18. DIAZEPAM. [Concomitant]
     Active Substance: DIAZEPAM
     Indication: BACK PAIN
     Dosage: 2 MILLIGRAM
     Route: 048
     Dates: start: 20150629, end: 201603
  19. CYCLIZINE [Concomitant]
     Active Substance: CYCLIZINE
     Dosage: 50 MILLIGRAM
     Route: 042
     Dates: start: 20160508, end: 20160509
  20. LEVOMEPROMAZINE [Concomitant]
     Active Substance: LEVOMEPROMAZINE
     Dosage: 6.25 MILLIGRAM, PRN
     Route: 042
     Dates: start: 20190116, end: 20190117
  21. TRASTUZUMAB. [Suspect]
     Active Substance: TRASTUZUMAB
     Dosage: 600 MILLIGRAM, Q3W
     Route: 058
     Dates: start: 20150326, end: 20160211
  22. CASSIA ACUTIFOLIA [Concomitant]
     Indication: CONSTIPATION
     Dosage: 7.5 MILLIGRAM, QD
     Route: 048
     Dates: start: 20160512
  23. DALTEPARIN [Concomitant]
     Active Substance: DALTEPARIN
     Dosage: 5000 INTERNATIONAL UNIT, QD
     Route: 058
     Dates: start: 20160508, end: 20160516
  24. AMOXICILLIN. [Concomitant]
     Active Substance: AMOXICILLIN
     Indication: LOWER RESPIRATORY TRACT INFECTION
     Dosage: 500 MILLIGRAM, 0.33 DAY
     Route: 048
     Dates: start: 20160309, end: 20160312
  25. CYCLIZINE [Concomitant]
     Active Substance: CYCLIZINE
     Dosage: 50 MILLIGRAM, PRN
     Route: 048
     Dates: start: 20181220, end: 20181220
  26. AMITRIPTYLINE [Concomitant]
     Active Substance: AMITRIPTYLINE
     Indication: ANXIETY
     Dosage: 20 MILLIGRAM
     Route: 048
     Dates: start: 20160228, end: 20160302
  27. AMITRIPTYLINE [Concomitant]
     Active Substance: AMITRIPTYLINE
     Dosage: 150 MILLIGRAM, PRN
     Route: 048
     Dates: start: 201809
  28. MACROGOL [Concomitant]
     Active Substance: POLYETHYLENE GLYCOLS
     Dosage: SACHET
     Route: 048
     Dates: start: 201505, end: 201506
  29. MACROGOL [Concomitant]
     Active Substance: POLYETHYLENE GLYCOLS
     Dosage: UNK, BID
     Route: 048
     Dates: start: 20160718, end: 20160722
  30. CYCLIZINE [Concomitant]
     Active Substance: CYCLIZINE
     Dosage: UNK
     Route: 042
     Dates: start: 20190119, end: 20190122
  31. HALOPERIDOL. [Concomitant]
     Active Substance: HALOPERIDOL
     Dosage: 1.5 MILLIGRAM
     Route: 048
     Dates: start: 200109
  32. TRASTUZUMAB. [Suspect]
     Active Substance: TRASTUZUMAB
     Dosage: 290 MILLIGRAM, Q3W
     Route: 042
     Dates: start: 20170209, end: 20171123
  33. PARACETAMOL [Concomitant]
     Active Substance: ACETAMINOPHEN
     Dosage: 1000 MILLIGRAM 0.25 DAY
     Route: 042
     Dates: start: 20190116, end: 20190120
  34. COCODAMOL [Concomitant]
     Active Substance: ACETAMINOPHEN\CODEINE PHOSPHATE
     Indication: CHOLECYSTITIS
     Dosage: 500 MILLIGRAM
     Route: 048
     Dates: start: 20151109, end: 201601
  35. CYCLIZINE [Concomitant]
     Active Substance: CYCLIZINE
     Dosage: 50 MILLIGRAM, PRN
     Route: 048
     Dates: start: 201809
  36. DOXYCYCLINE. [Concomitant]
     Active Substance: DOXYCYCLINE
     Dosage: 100 MILLIGRAM
     Route: 048
     Dates: start: 20150722, end: 20150728
  37. DOXYCYCLINE. [Concomitant]
     Active Substance: DOXYCYCLINE
     Dosage: 200 MILLIGRAM
     Route: 048
     Dates: start: 20150721, end: 20150721
  38. TRIMETHOPRIM. [Concomitant]
     Active Substance: TRIMETHOPRIM
     Indication: URINARY TRACT INFECTION
     Dosage: 400 MILLIGRAM, QD
     Route: 048
     Dates: start: 20150604, end: 20150606
  39. DOCUSATE [Concomitant]
     Active Substance: DOCUSATE
     Dosage: 300 UNK, QD
     Route: 048
     Dates: start: 20160516
  40. TAZOCIN [Concomitant]
     Active Substance: PIPERACILLIN SODIUM\TAZOBACTAM SODIUM
     Indication: LOWER RESPIRATORY TRACT INFECTION
     Dosage: 4.5 MILLIGRAM, 0.33 DAY
     Route: 042
     Dates: start: 20160304, end: 20160309
  41. TAZOCIN [Concomitant]
     Active Substance: PIPERACILLIN SODIUM\TAZOBACTAM SODIUM
     Dosage: 4.5 MILLIGRAM, 0.33 DAY
     Route: 042
     Dates: start: 20200204, end: 20200206
  42. CREON [Concomitant]
     Active Substance: PANCRELIPASE AMYLASE\PANCRELIPASE LIPASE\PANCRELIPASE PROTEASE
     Dosage: UNK
     Route: 048
     Dates: start: 201809
  43. SENNA                              /02118001/ [Concomitant]
     Active Substance: HERBALS\SENNOSIDES
     Dosage: 7.5 MILLIGRAM, QD
     Route: 048
     Dates: start: 20160512
  44. PARACETAMOL [Concomitant]
     Active Substance: ACETAMINOPHEN
     Dosage: 1000 MILLIGRAM 0.25 DAY
     Route: 042
     Dates: start: 20160718
  45. DOCUSATE SODIUM. [Concomitant]
     Active Substance: DOCUSATE SODIUM
     Dosage: 200 MILLIGRAM, BID
     Route: 048
     Dates: start: 201603, end: 20160405
  46. DALTEPARIN [Concomitant]
     Active Substance: DALTEPARIN
     Indication: PERIPHERAL SWELLING
     Dosage: 18000 UNITS
     Route: 058
     Dates: start: 20150504, end: 20151027
  47. DALTEPARIN [Concomitant]
     Active Substance: DALTEPARIN
     Dosage: 1 UNK, QD
     Route: 058
     Dates: start: 20160717, end: 20160722
  48. METOCLOPRAMIDE. [Concomitant]
     Active Substance: METOCLOPRAMIDE
     Dosage: 10 MILLIGRAM 0.33 DAY
     Route: 042
     Dates: start: 20160719, end: 20160722
  49. TRIMETHOPRIM. [Concomitant]
     Active Substance: TRIMETHOPRIM
     Dosage: 200 MILLIGRAM, BID
     Route: 048
     Dates: start: 20150604, end: 20150606
  50. ORAMORPH [Concomitant]
     Active Substance: MORPHINE SULFATE
     Dosage: 10 MILLIGRAM
     Route: 065
     Dates: start: 20150918, end: 20150919
  51. AMITRIPTYLINE [Concomitant]
     Active Substance: AMITRIPTYLINE
     Dosage: 150 MILLIGRAM
     Route: 048
     Dates: start: 201809
  52. CODEINE [Concomitant]
     Active Substance: CODEINE
     Dosage: 15 GRAM
     Route: 048
     Dates: start: 201504
  53. DOCUSATE [Concomitant]
     Active Substance: DOCUSATE
     Dosage: UNK
     Route: 048
     Dates: start: 201603, end: 20160405
  54. NYSTATIN. [Concomitant]
     Active Substance: NYSTATIN
     Dosage: 100000 U 0.25 DAY
     Dates: start: 201603, end: 20160330
  55. TAZOCIN [Concomitant]
     Active Substance: PIPERACILLIN SODIUM\TAZOBACTAM SODIUM
     Indication: C-REACTIVE PROTEIN INCREASED
     Dosage: 4.5 MILLIGRAM, 0.33 DAY
     Route: 042
     Dates: start: 20181222, end: 20181222
  56. LIDOCAINE. [Concomitant]
     Active Substance: LIDOCAINE
     Indication: BACK PAIN
     Dosage: 5 PERCENT
     Route: 062
     Dates: start: 20151109, end: 201603
  57. HALOPERIDOL. [Concomitant]
     Active Substance: HALOPERIDOL
     Dosage: 1.5 MILLIGRAM, QD
     Route: 048
     Dates: start: 200109
  58. PARACETAMOL [Concomitant]
     Active Substance: ACETAMINOPHEN
     Indication: OVARIAN CYST
  59. SALBUTAMOL [Concomitant]
     Active Substance: ALBUTEROL
     Indication: ASTHMA
     Dosage: AEROSOL IH (INHALED)
     Route: 048
     Dates: start: 201901
  60. CO?AMOXICLAV                       /00756801/ [Concomitant]
     Active Substance: AMOXICILLIN\CLAVULANIC ACID
     Dosage: 500 MILLIGRAM
     Route: 048
     Dates: start: 20190121, end: 20190123
  61. TRASTUZUMAB. [Suspect]
     Active Substance: TRASTUZUMAB
     Dosage: 350 MILLIGRAM, Q3W
     Route: 042
     Dates: start: 20160303, end: 20160421
  62. TRASTUZUMAB. [Suspect]
     Active Substance: TRASTUZUMAB
     Dosage: 280 MILLIGRAM, Q3W
     Route: 042
     Dates: start: 20160421, end: 20161124
  63. TRASTUZUMAB. [Suspect]
     Active Substance: TRASTUZUMAB
     Dosage: 290 MILLIGRAM, Q3W
     Route: 042
     Dates: start: 20180118
  64. PERTUZUMAB. [Suspect]
     Active Substance: PERTUZUMAB
     Indication: BREAST CANCER METASTATIC
     Dosage: 420 MILLIGRAM
     Route: 042
     Dates: start: 20150416, end: 20160211
  65. CASSIA ACUTIFOLIA [Concomitant]
     Dosage: UNK
     Route: 048
     Dates: start: 201603
  66. AMOXICILLIN. [Concomitant]
     Active Substance: AMOXICILLIN
     Indication: NASOPHARYNGITIS
     Dosage: 500 MILLIGRAM, 0.33 DAY
     Route: 048
     Dates: start: 20151007, end: 20151013
  67. BRUFEN                             /00109201/ [Concomitant]
     Active Substance: IBUPROFEN
     Indication: BACK PAIN
     Dosage: 1200 MILLIGRAM, QD
     Route: 048
     Dates: start: 20150509
  68. METOCLOPRAMIDE. [Concomitant]
     Active Substance: METOCLOPRAMIDE
     Dosage: 10 MILLIGRAM, 0.33 DAY
     Dates: start: 20150813
  69. CHLORHEXIDINE [Concomitant]
     Active Substance: CHLORHEXIDINE
     Indication: MUCOSAL INFLAMMATION
     Dosage: 20 MILLIGRAM SOLUTION
     Route: 048
     Dates: start: 201603
  70. CYCLIZINE [Concomitant]
     Active Substance: CYCLIZINE
     Indication: NAUSEA
     Dosage: 50 MILLIGRAM, 0.33 DAY
     Route: 042
     Dates: start: 20160717, end: 20160718
  71. AMOXICILLIN. [Concomitant]
     Active Substance: AMOXICILLIN
     Dosage: 500 MILLIGRAM
     Route: 048
     Dates: start: 20190121, end: 20190123
  72. PARACETAMOL [Concomitant]
     Active Substance: ACETAMINOPHEN
     Indication: VOMITING
     Dosage: 1000 GRAM
     Route: 048
     Dates: start: 201504
  73. HALOPERIDOL. [Concomitant]
     Active Substance: HALOPERIDOL
     Indication: ANXIETY
     Dosage: 5 MILLIGRAM, QD
     Route: 058
     Dates: start: 20160509
  74. PARACETAMOL [Concomitant]
     Active Substance: ACETAMINOPHEN
     Dosage: 1 GRAM
     Route: 042
     Dates: start: 20160508, end: 20160508
  75. LORAZEPAM. [Concomitant]
     Active Substance: LORAZEPAM
     Dosage: 1 MILLIGRAM, QD
     Route: 048
     Dates: start: 20160512
  76. CHLORHEXIDINE [Concomitant]
     Active Substance: CHLORHEXIDINE
     Dosage: 10 MILLILITER, BID
     Route: 048
     Dates: start: 20200205
  77. ORAMORPH [Concomitant]
     Active Substance: MORPHINE SULFATE
     Indication: BACK PAIN
     Dosage: 20 MILLIGRAM
     Route: 048
     Dates: start: 20150513, end: 20150518
  78. DOCUSATE [Concomitant]
     Active Substance: DOCUSATE
     Dosage: 300 MILLIGRAM, QD
     Route: 048
     Dates: start: 20160405, end: 20160516
  79. NYSTATIN. [Concomitant]
     Active Substance: NYSTATIN
     Dosage: 100000 U 0.25 DAY
     Route: 048
     Dates: start: 20160516
  80. BUSCOPAN [Concomitant]
     Active Substance: BUTYLSCOPOLAMINE BROMIDE
     Indication: DIARRHOEA
     Dosage: 10 MILLIGRAM
     Route: 048
     Dates: start: 20160405
  81. DULOXETINE. [Concomitant]
     Active Substance: DULOXETINE
     Indication: ANXIETY
     Dosage: 120 MILLIGRAM, QD
     Route: 048
     Dates: start: 201603
  82. HALOPERIDOL. [Concomitant]
     Active Substance: HALOPERIDOL
     Dosage: 1.5 MILLIGRAM
     Route: 048
     Dates: start: 201603, end: 201603
  83. SENNA                              /02118001/ [Concomitant]
     Active Substance: HERBALS\SENNOSIDES
     Dosage: UNK
     Route: 048
     Dates: start: 201605
  84. PACLITAXEL. [Suspect]
     Active Substance: PACLITAXEL
     Indication: BREAST CANCER METASTATIC
     Dosage: 183 MILLIGRAM, QW
     Route: 042
     Dates: start: 20150326, end: 20150812
  85. PARACETAMOL [Concomitant]
     Active Substance: ACETAMINOPHEN
     Indication: VOMITING
     Dosage: 1 GRAM
     Route: 042
     Dates: start: 20150918, end: 20150919
  86. ZOMORPH [Concomitant]
     Active Substance: MORPHINE SULFATE
     Indication: BACK PAIN
     Dosage: 20 MILLIGRAM
     Route: 048
     Dates: start: 20150710
  87. LORAZEPAM. [Concomitant]
     Active Substance: LORAZEPAM
     Dosage: 1 MILLIGRAM, QD
     Route: 048
     Dates: start: 201809
  88. DOCUSATE SODIUM. [Concomitant]
     Active Substance: DOCUSATE SODIUM
     Indication: CONSTIPATION
     Dosage: 100 MILLIGRAM, 0.33 DAY
     Route: 048
     Dates: start: 20160405, end: 20160516
  89. METOCLOPRAMIDE. [Concomitant]
     Active Substance: METOCLOPRAMIDE
     Indication: VOMITING
     Dosage: 10 MILLIGRAM
     Route: 065
     Dates: start: 20150326, end: 201505
  90. DOCUSATE [Concomitant]
     Active Substance: DOCUSATE
     Indication: CONSTIPATION
     Dosage: 200 MILLIGRAM, BID
     Route: 048
     Dates: start: 201603
  91. BUSCOPAN [Concomitant]
     Active Substance: BUTYLSCOPOLAMINE BROMIDE
     Dosage: 20 MILLIGRAM, 0.33 DAY
     Route: 048
     Dates: start: 20150721
  92. DIFFLAM [BENZYDAMINE] [Concomitant]
     Active Substance: BENZYDAMINE
     Indication: MUCOSAL INFLAMMATION
     Dosage: 15 MILLIGRAM
     Route: 048
     Dates: start: 201603, end: 20160330
  93. CYCLIZINE [Concomitant]
     Active Substance: CYCLIZINE
     Dosage: 1 UNK, PRN
     Route: 042
     Dates: start: 20190119, end: 20190122
  94. HALOPERIDOL. [Concomitant]
     Active Substance: HALOPERIDOL
     Indication: ANXIETY
     Dosage: 15 MILLIGRAM
     Route: 048
     Dates: start: 201603, end: 201603
  95. TRAMADOL. [Concomitant]
     Active Substance: TRAMADOL
     Dosage: 50 MILLIGRAM
     Route: 048
     Dates: start: 20181220, end: 20181221
  96. PARACETAMOL [Concomitant]
     Active Substance: ACETAMINOPHEN
     Dosage: 1000 MILLIGRAM 0.25 DAY
     Route: 042
     Dates: start: 20181220, end: 20181220
  97. CASSIA ACUTIFOLIA [Concomitant]
     Dosage: UNK, MONTHLY
     Route: 048
     Dates: start: 201603
  98. DOCUSATE SODIUM. [Concomitant]
     Active Substance: DOCUSATE SODIUM
     Dosage: 300 MILLIGRAM, QD
     Route: 048
     Dates: start: 201603
  99. CYCLIZINE [Concomitant]
     Active Substance: CYCLIZINE
     Indication: NAUSEA
     Dosage: 50 MILLIGRAM, 0.33 DAY
     Route: 048
     Dates: start: 201603, end: 201607
  100. CHLORHEXIDINE [Concomitant]
     Active Substance: CHLORHEXIDINE
     Indication: MOUTH ULCERATION
     Dosage: 10 MILLIGRAM, BID
     Route: 048
     Dates: start: 20200205
  101. GABAPENTIN. [Concomitant]
     Active Substance: GABAPENTIN
     Dosage: 900 MILLIGRAM, QD
     Route: 048
     Dates: start: 201304
  102. GABAPENTIN. [Concomitant]
     Active Substance: GABAPENTIN
     Dosage: 300 MILLIGRAM, 0.33 DAY
     Route: 048
     Dates: start: 201304
  103. MACROGOL [Concomitant]
     Active Substance: POLYETHYLENE GLYCOLS
     Dosage: 2, QD
     Route: 048
     Dates: start: 20160718, end: 20160722
  104. NYSTATIN. [Concomitant]
     Active Substance: NYSTATIN
     Indication: MUCOSAL INFLAMMATION
     Dosage: 4, 100000 U
     Route: 048
     Dates: start: 20160516
  105. AMOXICILLIN. [Concomitant]
     Active Substance: AMOXICILLIN
     Indication: LOWER RESPIRATORY TRACT INFECTION
     Dosage: 1500 MILLIGRAM, QD
     Route: 048
     Dates: start: 20160309, end: 20160312
  106. BECLOMETASONE [Concomitant]
     Active Substance: BECLOMETHASONE DIPROPIONATE
     Indication: ASTHMA
     Dosage: AEROSOL IH (INHALED) )
     Route: 065
     Dates: start: 201901
  107. TRAMADOL. [Concomitant]
     Active Substance: TRAMADOL
     Indication: PAIN
     Dosage: 50 MILLIGRAM, PRN
     Route: 048
     Dates: start: 20181220, end: 20181221
  108. SENNA                              /02118001/ [Concomitant]
     Active Substance: HERBALS\SENNOSIDES
     Indication: CONSTIPATION
     Dosage: 7.5 MILLIGRAM
     Route: 048
     Dates: start: 201505, end: 201505
  109. SENNA                              /02118001/ [Concomitant]
     Active Substance: HERBALS\SENNOSIDES
     Dosage: UNK
     Route: 048
     Dates: start: 201603

REACTIONS (28)
  - Gingival bleeding [Recovered/Resolved]
  - Gastroenteritis viral [Recovered/Resolved]
  - Gastrointestinal disorder [Not Recovered/Not Resolved]
  - Depressed mood [Not Recovered/Not Resolved]
  - Pain [Recovering/Resolving]
  - Back pain [Recovered/Resolved with Sequelae]
  - Alanine aminotransferase increased [Recovered/Resolved]
  - Mucosal inflammation [Recovered/Resolved]
  - Diarrhoea [Recovered/Resolved]
  - Peripheral swelling [Recovered/Resolved]
  - Urinary tract infection [Recovered/Resolved]
  - Vomiting [Recovered/Resolved]
  - Anaemia [Recovered/Resolved]
  - Nasopharyngitis [Unknown]
  - Viral infection [Recovered/Resolved]
  - Hypoaesthesia [Not Recovered/Not Resolved]
  - Abdominal pain [Recovered/Resolved]
  - Headache [Recovered/Resolved]
  - Lower respiratory tract infection [Recovered/Resolved]
  - Insomnia [Not Recovered/Not Resolved]
  - Rhinorrhoea [Recovered/Resolved]
  - Fatigue [Not Recovered/Not Resolved]
  - Anxiety [Not Recovered/Not Resolved]
  - Condition aggravated [Unknown]
  - Abdominal pain upper [Recovered/Resolved with Sequelae]
  - Dizziness [Not Recovered/Not Resolved]
  - Nausea [Not Recovered/Not Resolved]
  - Constipation [Unknown]

NARRATIVE: CASE EVENT DATE: 201505
